FAERS Safety Report 6673000-9 (Version None)
Quarter: 2010Q2

REPORT INFORMATION
  Report Type: 
  Country: None (occurrence: None)
  Receive Date: 20100408
  Receipt Date: 20100329
  Transmission Date: 20101027
  Serious: Yes (Other)
  Sender: FDA-Public Use
  Company Number: B0641144A

PATIENT

DRUGS (2)
  1. TYKERB [Suspect]
     Dosage: 250MG PER DAY
     Route: 048
     Dates: end: 20091101
  2. CAPECITABINE [Suspect]
     Dosage: 2400MG PER DAY
     Route: 065

REACTIONS (2)
  - DIARRHOEA [None]
  - PALMAR-PLANTAR ERYTHRODYSAESTHESIA SYNDROME [None]
